FAERS Safety Report 22987618 (Version 3)
Quarter: 2023Q4

REPORT INFORMATION
  Report Type: Spontaneous
  Country: IN (occurrence: IN)
  Receive Date: 20230926
  Receipt Date: 20231018
  Transmission Date: 20240110
  Serious: Yes (Hospitalization, Other)
  Sender: FDA-Public Use
  Company Number: IN-002147023-NVSC2023IN207663

PATIENT
  Age: 30 Year
  Sex: Female

DRUGS (1)
  1. DICLOFENAC [Suspect]
     Active Substance: DICLOFENAC
     Indication: Sacroiliitis
     Dosage: 50 MG, WHENEVER REQUIRED
     Route: 065

REACTIONS (2)
  - Acute pulmonary oedema [Recovering/Resolving]
  - Product use in unapproved indication [Unknown]
